FAERS Safety Report 7884713-5 (Version None)
Quarter: 2011Q4

REPORT INFORMATION
  Report Type: 
  Country: None (occurrence: None)
  Receive Date: 20111102
  Receipt Date: 20111018
  Transmission Date: 20120403
  Serious: Yes (Other)
  Sender: FDA-Public Use
  Company Number: HU-US-EMD SERONO, INC.-7065540

PATIENT
  Sex: Male
  Weight: 110 kg

DRUGS (4)
  1. XETER [Suspect]
     Indication: HYPERCHOLESTEROLAEMIA
     Dates: end: 20110401
  2. REBIF [Suspect]
     Indication: RELAPSING-REMITTING MULTIPLE SCLEROSIS
     Route: 058
     Dates: start: 20101201, end: 20110401
  3. REBIF [Suspect]
     Route: 058
     Dates: start: 20110601
  4. XETER [Suspect]
     Route: 048
     Dates: start: 20110601

REACTIONS (3)
  - ASPARTATE AMINOTRANSFERASE INCREASED [None]
  - GAMMA-GLUTAMYLTRANSFERASE INCREASED [None]
  - ALANINE AMINOTRANSFERASE INCREASED [None]
